FAERS Safety Report 17581197 (Version 1)
Quarter: 2020Q1

REPORT INFORMATION
  Report Type: Spontaneous
  Country: GB (occurrence: GB)
  Receive Date: 20200325
  Receipt Date: 20200325
  Transmission Date: 20200409
  Serious: Yes (Life-Threatening, Other)
  Sender: FDA-Public Use
  Company Number: GB-MYLANLABS-2020M1030852

PATIENT
  Age: 87 Year
  Sex: Female
  Weight: 52 kg

DRUGS (9)
  1. ACCRETE D3 [Concomitant]
     Active Substance: CALCIUM CARBONATE\CHOLECALCIFEROL
     Dosage: 2 DOSAGE FORM, QD, TO HELP PROTECT BONE
     Dates: start: 20200113
  2. LOSARTAN. [Concomitant]
     Active Substance: LOSARTAN
     Indication: HYPERTENSION
     Dosage: 1 DOSAGE FORM, QD
     Dates: start: 20140609
  3. FERROUS FUMARATE [Concomitant]
     Active Substance: FERROUS FUMARATE
     Indication: IRON DEFICIENCY ANAEMIA
     Dosage: 1 DOSAGE FORM, QD
     Dates: start: 20190220
  4. PROCHLORPERAZINE. [Concomitant]
     Active Substance: PROCHLORPERAZINE
     Dosage: 3 DOSAGE FORM, QD
     Dates: start: 20191025, end: 20191122
  5. CINNARIZINE [Concomitant]
     Active Substance: CINNARIZINE
     Indication: DIZZINESS
     Dosage: 3 DOSAGE FORM, QD
     Dates: start: 20191025
  6. BENDROFLUMETHIAZIDE [Concomitant]
     Active Substance: BENDROFLUMETHIAZIDE
     Indication: HYPERTENSION
     Dosage: 1 DOSAGE FORM, QD EACH MORNING
     Dates: start: 20180319
  7. BETAHISTINE [Concomitant]
     Active Substance: BETAHISTINE
     Indication: DIZZINESS
     Dosage: 6 DOSAGE FORM, QD
     Dates: start: 20191007
  8. DENOSUMAB [Concomitant]
     Active Substance: DENOSUMAB
     Dosage: 1 DOSAGE FORM
     Route: 058
     Dates: start: 20190510
  9. BISOPROLOL [Suspect]
     Active Substance: BISOPROLOL
     Indication: PRODUCT USED FOR UNKNOWN INDICATION
     Dosage: 5 MILLIGRAM, QD, TO REDUCE HEAR STRAIN/ FAILURE
     Dates: start: 20191107, end: 20191205

REACTIONS (1)
  - Drug-induced liver injury [Recovered/Resolved]
